FAERS Safety Report 19932159 (Version 3)
Quarter: 2021Q4

REPORT INFORMATION
  Report Type: Report from Study
  Country: None (occurrence: KR)
  Receive Date: 20211008
  Receipt Date: 20211020
  Transmission Date: 20220303
  Serious: Yes (Death)
  Sender: FDA-Public Use
  Company Number: KR-ABBVIE-21K-090-4111943-00

PATIENT
  Age: 87 Year
  Sex: Female
  Weight: 40.2 kg

DRUGS (14)
  1. VENCLEXTA [Suspect]
     Active Substance: VENETOCLAX
     Indication: Acute myeloid leukaemia
     Route: 048
     Dates: start: 20210827, end: 20210827
  2. VENCLEXTA [Suspect]
     Active Substance: VENETOCLAX
     Route: 048
     Dates: start: 20210828, end: 20210828
  3. VENCLEXTA [Suspect]
     Active Substance: VENETOCLAX
     Route: 048
     Dates: start: 20210829, end: 20210901
  4. ALLOPURINOL [Concomitant]
     Active Substance: ALLOPURINOL
     Indication: Prophylaxis
     Route: 048
     Dates: start: 20210827, end: 20210902
  5. LEVOFLOXACIN [Concomitant]
     Active Substance: LEVOFLOXACIN
     Indication: Pyelonephritis acute
     Dosage: 750MG/150ML
     Route: 042
     Dates: start: 20210827, end: 20210909
  6. PACETA [Concomitant]
     Indication: Pyrexia
     Dosage: PRN
     Route: 042
     Dates: start: 20210827, end: 20210909
  7. MEROPENEM [Concomitant]
     Active Substance: MEROPENEM
     Indication: Pyelonephritis acute
     Dosage: 2 VIAL
     Route: 042
     Dates: start: 20210827, end: 20210909
  8. ARICEPT EVESS [Concomitant]
     Indication: Cerebral infarction
     Route: 048
     Dates: start: 202107, end: 20210909
  9. DACOGEN [Concomitant]
     Active Substance: DECITABINE
     Indication: Acute myeloid leukaemia
     Route: 042
     Dates: start: 20210827, end: 20210830
  10. NOXAFIL [Concomitant]
     Active Substance: POSACONAZOLE
     Indication: Pyelonephritis acute
     Dosage: GASTRO RESISTANT
     Route: 048
     Dates: start: 20210827, end: 20210909
  11. MECKOOL [Concomitant]
     Indication: Nausea
     Dosage: PRN
     Route: 042
     Dates: start: 20210828, end: 20210909
  12. NORSPAN [Concomitant]
     Active Substance: BUPRENORPHINE
     Indication: Pain management
     Dosage: PATCH
     Route: 062
     Dates: start: 20210901, end: 20210908
  13. LASIX [Concomitant]
     Active Substance: FUROSEMIDE
     Indication: Pulmonary oedema
     Route: 042
     Dates: start: 20210903, end: 20210909
  14. SULFAMETHOXAZOLE\TRIMETHOPRIM [Concomitant]
     Active Substance: SULFAMETHOXAZOLE\TRIMETHOPRIM
     Indication: Pyelonephritis acute
     Route: 042
     Dates: start: 20210903, end: 20210908

REACTIONS (1)
  - Pneumonia [Fatal]

NARRATIVE: CASE EVENT DATE: 20210902
